FAERS Safety Report 5306547-8 (Version None)
Quarter: 2007Q2

REPORT INFORMATION
  Report Type: 
  Country: None (occurrence: None)
  Receive Date: 20070418
  Receipt Date: 20070404
  Transmission Date: 20071010
  Serious: Yes (Other)
  Sender: FDA-Public Use
  Company Number: 2006US002481

PATIENT
  Age: 22 Year
  Sex: Male

DRUGS (4)
  1. AMBISOME [Suspect]
     Indication: PNEUMONIA BACTERIAL
     Dosage: 5MG, IV NOS
     Dates: start: 20060207, end: 20060207
  2. FLUCONAZOLE [Concomitant]
  3. FLUCYTOSINE (FLUCYTOSINE) [Concomitant]
  4. IMURAN [Concomitant]

REACTIONS (11)
  - ANOREXIA [None]
  - DIARRHOEA [None]
  - FATIGUE [None]
  - HYPERSENSITIVITY [None]
  - INJECTION SITE PAIN [None]
  - NIGHT SWEATS [None]
  - PETIT MAL EPILEPSY [None]
  - PYREXIA [None]
  - SHOCK [None]
  - SKIN REACTION [None]
  - WEIGHT DECREASED [None]
